FAERS Safety Report 8232220 (Version 2)
Quarter: 2013Q4

REPORT INFORMATION
  Report Type: Spontaneous
  Country: US (occurrence: US)
  Receive Date: 20111107
  Receipt Date: 20131030
  Transmission Date: 20140711
  Serious: Yes (Other)
  Sender: FDA-Public Use
  Company Number: US-BAYER-2011-106151

PATIENT
  Age: 25 Year
  Sex: Female
  Weight: 56.69 kg

DRUGS (3)
  1. MIRENA [Suspect]
     Indication: CONTRACEPTION
     Dosage: 20 MCG/24HR, CONT
     Dates: start: 200809, end: 20111108
  2. ZOLOFT [Concomitant]
     Dosage: DAILY DOSE 100 MG
     Route: 048
  3. IRON [Concomitant]

REACTIONS (7)
  - Uterine perforation [Not Recovered/Not Resolved]
  - Pain [Not Recovered/Not Resolved]
  - Discomfort [Not Recovered/Not Resolved]
  - Vaginal haemorrhage [None]
  - Depression [None]
  - Anxiety [None]
  - Feeling abnormal [None]
